FAERS Safety Report 8976246 (Version 1)
Quarter: 2012Q4

REPORT INFORMATION
  Report Type: 
  Country: US (occurrence: US)
  Receive Date: 20121219
  Receipt Date: 20121219
  Transmission Date: 20130627
  Serious: No
  Sender: FDA-Public Use
  Company Number: US-AMGEN-USASP2012060964

PATIENT
  Age: 88 Year
  Sex: Male
  Weight: 88.44 kg

DRUGS (2)
  1. XGEVA [Suspect]
     Indication: PROSTATE CANCER
     Dosage: 120 mg, UNK
     Route: 058
     Dates: start: 20120504
  2. LUPRON [Concomitant]
     Dosage: 30 mg, q4mo
     Route: 030
     Dates: start: 20120606

REACTIONS (1)
  - Inappropriate schedule of drug administration [Recovered/Resolved]
